FAERS Safety Report 4302509-8 (Version None)
Quarter: 2004Q1

REPORT INFORMATION
  Report Type: 
  Country: None (occurrence: None)
  Receive Date: 20040223
  Receipt Date: 20040223
  Transmission Date: 20041129
  Serious: Yes (Other)
  Sender: FDA-Public Use
  Company Number: None

PATIENT
  Age: 47 Year
  Sex: Male
  Weight: 74 kg

DRUGS (1)
  1. GAMMAR-P I.V. [Suspect]
     Indication: STEM CELL TRANSPLANT
     Dosage: 20 GMS WEEKLY INTRAVENOUS
     Route: 042
     Dates: start: 20031229, end: 20031229

REACTIONS (5)
  - CHILLS [None]
  - COUGH [None]
  - DIZZINESS [None]
  - DYSPNOEA [None]
  - FLUSHING [None]
